FAERS Safety Report 14732096 (Version 2)
Quarter: 2018Q2

REPORT INFORMATION
  Report Type: Spontaneous
  Country: JP (occurrence: JP)
  Receive Date: 20180408
  Receipt Date: 20180513
  Transmission Date: 20180711
  Serious: No
  Sender: FDA-Public Use
  Company Number: JP-AMGEN-JPNSP2018047077

PATIENT
  Age: 74 Year
  Sex: Female

DRUGS (1)
  1. RANMARK [Suspect]
     Active Substance: DENOSUMAB
     Indication: METASTASES TO BONE
     Dosage: 120 MG, QMO
     Route: 058
     Dates: start: 201708

REACTIONS (1)
  - Dental discomfort [Not Recovered/Not Resolved]

NARRATIVE: CASE EVENT DATE: 20180402
